FAERS Safety Report 8913353 (Version 5)
Quarter: 2013Q2

REPORT INFORMATION
  Report Type: Report from Study
  Country: US (occurrence: US)
  Receive Date: 20121116
  Receipt Date: 20130612
  Transmission Date: 20140414
  Serious: Yes (Hospitalization)
  Sender: FDA-Public Use
  Company Number: US-PFIZER INC-2012281726

PATIENT
  Age: 54 Year
  Sex: Male
  Weight: 77 kg

DRUGS (9)
  1. TORISEL [Suspect]
     Indication: HEPATIC CANCER
     Dosage: 25 MG, DAY 1,8, AND 15 EVERY 21 DAYS
     Route: 042
     Dates: start: 20120327, end: 20121102
  2. SPIRONOLACTONE [Concomitant]
     Indication: LIVER DISORDER
     Dosage: 50 MG, 1X/DAY
     Route: 048
     Dates: start: 20120412
  3. BENZONATATE [Concomitant]
     Indication: COUGH
     Dosage: 1-2 100 MG, THREE TIMES A DAY AS NEEDED
     Route: 048
     Dates: start: 20120814
  4. FERROUS SULFATE [Concomitant]
     Indication: SUPPLEMENTATION THERAPY
     Dosage: 325 MG, 3X/DAY
     Dates: start: 20120724
  5. HYDROMORPHONE [Concomitant]
     Indication: PAIN
     Dosage: 4 MG, EVERY FOUR HOURS AS NEEDED
     Route: 048
     Dates: start: 20120313
  6. LACTULOSE [Concomitant]
     Dosage: 30 ML, 1X/DAY
     Route: 048
     Dates: start: 20111018
  7. PROMETHAZINE [Concomitant]
     Indication: NAUSEA
     Dosage: 25 MG, EVERY 4-6 HOURS AS NEEDED
     Route: 048
     Dates: start: 20120327
  8. PROMETHAZINE [Concomitant]
     Indication: VOMITING
  9. PROPRANOLOL HCL [Concomitant]
     Indication: HYPERTENSION
     Dosage: 10 MG, 3X/DAY
     Route: 048
     Dates: start: 20111018

REACTIONS (1)
  - Haemorrhage intracranial [Not Recovered/Not Resolved]
